FAERS Safety Report 10251563 (Version 2)
Quarter: 2014Q2

REPORT INFORMATION
  Report Type: Spontaneous
  Country: JP (occurrence: JP)
  Receive Date: 20140623
  Receipt Date: 20140623
  Transmission Date: 20141212
  Serious: Yes (Hospitalization)
  Sender: FDA-Public Use
  Company Number: JP-UCBSA-2014000387

PATIENT
  Sex: Female

DRUGS (3)
  1. NEUPRO [Suspect]
     Indication: PARKINSON^S DISEASE
     Dosage: UNKNOWN DOSE
     Route: 062
     Dates: start: 20140224, end: 2014
  2. NEUPRO [Suspect]
     Dosage: 8 MG, ONCE DAILY (QD)
     Route: 062
     Dates: start: 2014, end: 20140514
  3. ROPINIROLE HYDROCHLORIDE [Concomitant]
     Dosage: UNK

REACTIONS (1)
  - Posture abnormal [Recovering/Resolving]
